FAERS Safety Report 20319415 (Version 2)
Quarter: 2022Q1

REPORT INFORMATION
  Report Type: Other
  Country: US (occurrence: US)
  Receive Date: 20220110
  Receipt Date: 20220311
  Transmission Date: 20220424
  Serious: Yes (Hospitalization, Other)
  Sender: FDA-Public Use
  Company Number: US-Covis Pharma GmbH-2022COV00074

PATIENT
  Age: 28 Year
  Sex: Female
  Weight: 108.96 kg

DRUGS (3)
  1. MAKENA [Suspect]
     Active Substance: HYDROXYPROGESTERONE CAPROATE
     Indication: Premature delivery
     Route: 058
     Dates: start: 2021, end: 20211224
  2. pneumococcal 23-polyvalent vaccine [Concomitant]
     Indication: Prophylaxis
     Route: 030
     Dates: start: 20211225
  3. tetanus/diphth/pertuss (Tdap) [Concomitant]
     Indication: Prophylaxis
     Dosage: ONE TIME
     Route: 030
     Dates: start: 20211225

REACTIONS (10)
  - Placenta praevia haemorrhage [Recovered/Resolved]
  - Premature separation of placenta [Recovered/Resolved]
  - Preterm premature rupture of membranes [Recovered/Resolved]
  - Breech presentation [Recovered/Resolved]
  - Oligohydramnios [Recovered/Resolved]
  - Premature delivery [Recovered/Resolved]
  - Venous haemorrhage [Unknown]
  - Constipation [Unknown]
  - Nipple pain [Unknown]
  - Pruritus [Unknown]

NARRATIVE: CASE EVENT DATE: 20211225
